FAERS Safety Report 4313235-3 (Version None)
Quarter: 2004Q1

REPORT INFORMATION
  Report Type: 
  Country: None (occurrence: None)
  Receive Date: 20040305
  Receipt Date: 20040217
  Transmission Date: 20041129
  Serious: No
  Sender: FDA-Public Use
  Company Number: A-CH2004-05193

PATIENT
  Age: 41 Year
  Sex: Female

DRUGS (1)
  1. TRACLEER [Suspect]
     Indication: PULMONARY HYPERTENSION
     Dosage: 62.5 MG, BID, ORAL
     Route: 048
     Dates: start: 20030407

REACTIONS (1)
  - HYPERKERATOSIS [None]
